FAERS Safety Report 19815029 (Version 2)
Quarter: 2021Q3

REPORT INFORMATION
  Report Type: Spontaneous
  Country: FR (occurrence: FR)
  Receive Date: 20210910
  Receipt Date: 20210930
  Transmission Date: 20211014
  Serious: Yes (Hospitalization)
  Sender: FDA-Public Use
  Company Number: FR-PFIZER INC-202101122661

PATIENT
  Age: 2 Month
  Sex: Female
  Weight: 2.3 kg

DRUGS (9)
  1. BEVACIZUMAB. [Suspect]
     Active Substance: BEVACIZUMAB
     Indication: RETINOPATHY OF PREMATURITY
     Dosage: UNK
     Route: 031
     Dates: start: 20210803, end: 20210803
  2. NEOSYNEPHRINE [Interacting]
     Active Substance: PHENYLEPHRINE HYDROCHLORIDE
     Dosage: UNK
     Route: 047
     Dates: start: 20210808, end: 20210808
  3. MYDRIATICUM [Interacting]
     Active Substance: TROPICAMIDE
     Dosage: UNK
     Route: 047
     Dates: start: 20210805, end: 20210805
  4. NEOSYNEPHRINE [Interacting]
     Active Substance: PHENYLEPHRINE HYDROCHLORIDE
     Indication: MYDRIASIS
     Dosage: UNK
     Route: 047
     Dates: start: 20210803, end: 20210803
  5. NEOSYNEPHRINE [Interacting]
     Active Substance: PHENYLEPHRINE HYDROCHLORIDE
     Dosage: UNK
     Route: 047
     Dates: start: 20210805, end: 20210805
  6. MYDRIATICUM [Interacting]
     Active Substance: TROPICAMIDE
     Indication: MYDRIASIS
     Dosage: UNK
     Route: 047
     Dates: start: 20210803, end: 20210803
  7. MYDRIATICUM [Interacting]
     Active Substance: TROPICAMIDE
     Dosage: UNK
     Route: 047
     Dates: start: 20210808, end: 20210808
  8. MYDRIATICUM [Interacting]
     Active Substance: TROPICAMIDE
     Dosage: UNK
     Route: 047
     Dates: start: 20210812, end: 20210812
  9. NEOSYNEPHRINE [Interacting]
     Active Substance: PHENYLEPHRINE HYDROCHLORIDE
     Dosage: UNK
     Route: 047
     Dates: start: 20210812, end: 20210812

REACTIONS (5)
  - Necrotising colitis [Recovered/Resolved]
  - Drug interaction [Not Recovered/Not Resolved]
  - Off label use [Unknown]
  - Product use issue [Unknown]
  - Condition aggravated [Recovered/Resolved]

NARRATIVE: CASE EVENT DATE: 20210803
